FAERS Safety Report 15740901 (Version 1)
Quarter: 2018Q4

REPORT INFORMATION
  Report Type: Spontaneous
  Country: US (occurrence: US)
  Receive Date: 20181213
  Receipt Date: 20181213
  Transmission Date: 20190205
  Serious: Yes (Hospitalization)
  Sender: FDA-Public Use
  Company Number: None

PATIENT
  Age: 71 Year
  Sex: Male

DRUGS (1)
  1. RIVAROXABAN [Suspect]
     Active Substance: RIVAROXABAN
     Dates: start: 20180810, end: 20181128

REACTIONS (3)
  - Gastric haemorrhage [None]
  - Gastrointestinal haemorrhage [None]
  - Decreased appetite [None]
